FAERS Safety Report 9100005 (Version 2)
Quarter: 2013Q1

REPORT INFORMATION
  Report Type: Spontaneous
  Country: US (occurrence: US)
  Receive Date: 20130215
  Receipt Date: 20130305
  Transmission Date: 20140127
  Serious: No
  Sender: FDA-Public Use
  Company Number: US-VERTEX PHARMACEUTICALS INC.-2013-002017

PATIENT
  Age: 63 None
  Sex: Male
  Weight: 97 kg

DRUGS (4)
  1. INCIVEK [Suspect]
     Indication: HEPATITIS C
     Dosage: 750 MG, TID
     Route: 048
     Dates: start: 20121214, end: 20130204
  2. RIBAVIRIN [Suspect]
     Indication: HEPATITIS C
     Dosage: 600 MG, BID
     Route: 048
     Dates: start: 20121214
  3. RIBAVIRIN [Suspect]
     Dosage: 400MG IN AM AND 200MG IN PM
     Route: 048
     Dates: start: 20130105, end: 20130213
  4. PEGASYS [Suspect]
     Indication: HEPATITIS C
     Dosage: 180 ?G, QW
     Route: 058
     Dates: start: 20121214, end: 20130213

REACTIONS (3)
  - Eosinophil count increased [Recovered/Resolved]
  - Rash generalised [Not Recovered/Not Resolved]
  - Haemoglobin decreased [Not Recovered/Not Resolved]
